FAERS Safety Report 10003780 (Version 2)
Quarter: 2014Q1

REPORT INFORMATION
  Report Type: Spontaneous
  Country: US (occurrence: US)
  Receive Date: 20140312
  Receipt Date: 20140328
  Transmission Date: 20141002
  Serious: No
  Sender: FDA-Public Use
  Company Number: US-009507513-1402USA006917

PATIENT
  Sex: Female
  Weight: 68.27 kg

DRUGS (1)
  1. NUVARING [Suspect]
     Dosage: AS DIRECTED
     Route: 067
     Dates: start: 20140113

REACTIONS (3)
  - Device expulsion [Unknown]
  - Inappropriate schedule of drug administration [Unknown]
  - No adverse event [Unknown]
